FAERS Safety Report 12229185 (Version 1)
Quarter: 2016Q1

REPORT INFORMATION
  Report Type: Spontaneous
  Country: US (occurrence: None)
  Receive Date: 20160331
  Receipt Date: 20160331
  Transmission Date: 20160526
  Serious: Yes (Other)
  Sender: FDA-Public Use
  Company Number: None

PATIENT
  Age: 54 Year
  Sex: Male

DRUGS (1)
  1. XELODA [Suspect]
     Active Substance: CAPECITABINE
     Indication: GASTRIC CANCER
     Dosage: 21 DAYS ON AND 7 DAYS OFF
     Route: 048
     Dates: start: 201603, end: 2016

REACTIONS (3)
  - Palmar-plantar erythrodysaesthesia syndrome [None]
  - Constipation [None]
  - Haemorrhoids [None]

NARRATIVE: CASE EVENT DATE: 20160306
